FAERS Safety Report 21085791 (Version 1)
Quarter: 2022Q3

REPORT INFORMATION
  Report Type: Spontaneous
  Country: US (occurrence: US)
  Receive Date: 20220715
  Receipt Date: 20220715
  Transmission Date: 20221027
  Serious: Yes (Hospitalization, Other)
  Sender: FDA-Public Use
  Company Number: US-BRISTOL-MYERS SQUIBB COMPANY-2022-070130

PATIENT
  Age: 69 Year
  Sex: Male

DRUGS (13)
  1. REVLIMID [Suspect]
     Active Substance: LENALIDOMIDE
     Indication: Plasma cell myeloma
     Route: 048
     Dates: start: 20220406
  2. FERROUS SULFATE [Concomitant]
     Active Substance: FERROUS SULFATE
     Dosage: (5GR)
  3. DEXAMETHASONE [Concomitant]
     Active Substance: DEXAMETHASONE
  4. HYDROCODONE [Concomitant]
     Active Substance: HYDROCODONE
     Indication: Hypersensitivity
     Dosage: ULTRATABS
  5. CYCLOBENZAPRINE [Concomitant]
     Active Substance: CYCLOBENZAPRINE
  6. ACETAMINOPHEN\HYDROCODONE [Concomitant]
     Active Substance: ACETAMINOPHEN\HYDROCODONE
     Dosage: 5-325
  7. ERGOCALCIFEROL [Concomitant]
     Active Substance: ERGOCALCIFEROL
     Dosage: SOFT GEL
  8. ACYCLOVIR [Concomitant]
     Active Substance: ACYCLOVIR
  9. CYANOCOBALAMIN;FOLIC ACID;PYRIDOXINE HYDROCHLORIDE;RIBOFLAVIN [Concomitant]
     Dosage: 1000/ML?1 ML
  10. ELIQUIS [Concomitant]
     Active Substance: APIXABAN
  11. HERBALS\PLANTAGO OVATA LEAF [Concomitant]
     Active Substance: HERBALS\PLANTAGO OVATA LEAF
  12. TRAMADOL [Concomitant]
     Active Substance: TRAMADOL
  13. VELCADE [Concomitant]
     Active Substance: BORTEZOMIB
     Dosage: 1 VIAL

REACTIONS (1)
  - Vertebral column mass [Unknown]

NARRATIVE: CASE EVENT DATE: 20220701
